FAERS Safety Report 6557213-2 (Version None)
Quarter: 2010Q1

REPORT INFORMATION
  Report Type: 
  Country: None (occurrence: None)
  Receive Date: 20100127
  Receipt Date: 20100127
  Transmission Date: 20100710
  Serious: No
  Sender: FDA-Public Use
  Company Number: None

PATIENT
  Age: 50 Year
  Sex: Female
  Weight: 63.5036 kg

DRUGS (1)
  1. SULFAMETHOXAZOLE AND TRIMETHOPRIM DOUBLE STRENGTH [Suspect]
     Indication: SINUSITIS
     Dates: start: 20100123, end: 20100125

REACTIONS (8)
  - ANXIETY [None]
  - INSOMNIA [None]
  - IRRITABILITY [None]
  - NECK PAIN [None]
  - TACHYPHRENIA [None]
  - TENSION [None]
  - TREATMENT NONCOMPLIANCE [None]
  - TREMOR [None]
